FAERS Safety Report 23581950 (Version 1)
Quarter: 2024Q1

REPORT INFORMATION
  Report Type: Spontaneous
  Country: US (occurrence: US)
  Receive Date: 20240229
  Receipt Date: 20240229
  Transmission Date: 20240409
  Serious: No
  Sender: FDA-Public Use
  Company Number: US-Cardinal Health 414-NPHS-AE-23-14

PATIENT
  Age: 51 Year
  Sex: Female
  Weight: 75.3 kg

DRUGS (2)
  1. UNSPECIFIED INGREDIENT [Suspect]
     Active Substance: UNSPECIFIED INGREDIENT
     Dosage: CONTRAST MEDIA GIVEN FOR AN MRI AT 0800 6/22/2023
     Dates: start: 20230622, end: 20230622
  2. TECHNETIUM TC-99M MEDRONATE KIT [Suspect]
     Active Substance: TECHNETIUM TC-99M MEDRONATE
     Indication: Bone scan
     Route: 042
     Dates: start: 20230622, end: 20230622

REACTIONS (6)
  - Urticaria [Unknown]
  - Off label use [Recovered/Resolved]
  - Rash [Unknown]
  - Flushing [Unknown]
  - Feeling hot [Unknown]
  - Hypersensitivity [Unknown]

NARRATIVE: CASE EVENT DATE: 20230622
